FAERS Safety Report 10866357 (Version 1)
Quarter: 2015Q1

REPORT INFORMATION
  Report Type: Spontaneous
  Country: US (occurrence: None)
  Receive Date: 20150219
  Receipt Date: 20150219
  Transmission Date: 20150721
  Serious: No
  Sender: FDA-Public Use
  Company Number: None

PATIENT
  Age: 31 Year
  Sex: Female
  Weight: 112.49 kg

DRUGS (1)
  1. MIRENA [Suspect]
     Active Substance: LEVONORGESTREL
     Dates: start: 20141202

REACTIONS (4)
  - Alopecia [None]
  - Menorrhagia [None]
  - Oligomenorrhoea [None]
  - Menstrual disorder [None]

NARRATIVE: CASE EVENT DATE: 20150218
